FAERS Safety Report 12886049 (Version 1)
Quarter: 2016Q4

REPORT INFORMATION
  Report Type: Spontaneous
  Country: US (occurrence: US)
  Receive Date: 20161025
  Receipt Date: 20161025
  Transmission Date: 20170207
  Serious: Yes (Disabling)
  Sender: FDA-Public Use
  Company Number: None

PATIENT
  Age: 32 Year
  Sex: Male
  Weight: 105.75 kg

DRUGS (2)
  1. BUPRENORPHIN SUB [Suspect]
     Active Substance: BUPRENORPHINE
     Indication: DRUG DEPENDENCE
     Dosage: ?          QUANTITY:90 TABLET(S);??3 TIMES A DAY
     Route: 060
  2. SUBUTEX [Concomitant]
     Active Substance: BUPRENORPHINE HYDROCHLORIDE

REACTIONS (6)
  - Mental disorder [None]
  - Muscle atrophy [None]
  - Gingival recession [None]
  - Gingival pain [None]
  - Feeding disorder [None]
  - Impaired work ability [None]

NARRATIVE: CASE EVENT DATE: 20161025
